FAERS Safety Report 7961109-9 (Version None)
Quarter: 2011Q4

REPORT INFORMATION
  Report Type: 
  Country: None (occurrence: None)
  Receive Date: 20111202
  Receipt Date: 20111121
  Transmission Date: 20120403
  Serious: Yes (Life-Threatening)
  Sender: FDA-Public Use
  Company Number: 1000025745

PATIENT
  Age: 65 Year
  Sex: Male

DRUGS (1)
  1. ESCITALOPRAM OXALATE [Suspect]
     Indication: DEPRESSION
     Dosage: 20 MG (20 MG, 1 IN 1 D, ORAL
     Route: 048
     Dates: end: 20111030

REACTIONS (2)
  - ELECTROCARDIOGRAM QT PROLONGED [None]
  - ACUTE MYOCARDIAL INFARCTION [None]
